FAERS Safety Report 11326353 (Version 2)
Quarter: 2015Q3

REPORT INFORMATION
  Report Type: Spontaneous
  Country: US (occurrence: US)
  Receive Date: 20150731
  Receipt Date: 20150916
  Transmission Date: 20151125
  Serious: No
  Sender: FDA-Public Use
  Company Number: US-PFIZER INC-2015246521

PATIENT
  Age: 57 Year
  Sex: Female

DRUGS (3)
  1. IBRANCE [Suspect]
     Active Substance: PALBOCICLIB
     Dosage: 100 MG, UNK
     Dates: start: 20150625
  2. IBRANCE [Suspect]
     Active Substance: PALBOCICLIB
     Dosage: 100 MG, UNK
     Dates: start: 20150721, end: 20150819
  3. LETROZOLE. [Suspect]
     Active Substance: LETROZOLE

REACTIONS (4)
  - Fatigue [Unknown]
  - White blood cell count decreased [Unknown]
  - Cough [Unknown]
  - Malaise [Unknown]
